FAERS Safety Report 7023720-1 (Version None)
Quarter: 2010Q4

REPORT INFORMATION
  Report Type: 
  Country: None (occurrence: None)
  Receive Date: 20101001
  Receipt Date: 20100927
  Transmission Date: 20110411
  Serious: Yes (Death)
  Sender: FDA-Public Use
  Company Number: US-CELGENEUS-163-21880-10091980

PATIENT
  Sex: Female

DRUGS (1)
  1. REVLIMID [Suspect]
     Indication: MYELODYSPLASTIC SYNDROME
     Route: 048
     Dates: start: 20100701, end: 20100901

REACTIONS (5)
  - DISEASE PROGRESSION [None]
  - HYPERTENSION [None]
  - LEUKOCYTOSIS [None]
  - SEPSIS [None]
  - TACHYCARDIA [None]
